FAERS Safety Report 5736359-2 (Version None)
Quarter: 2008Q2

REPORT INFORMATION
  Report Type: 
  Country: None (occurrence: None)
  Receive Date: 20080513
  Receipt Date: 20080510
  Transmission Date: 20081010
  Serious: Yes (Hospitalization)
  Sender: FDA-Public Use
  Company Number: US-ALLERGAN-0804034US

PATIENT
  Sex: Male
  Weight: 17 kg

DRUGS (1)
  1. BOTOX [Suspect]
     Indication: MUSCLE SPASTICITY
     Dosage: 400 UNITS, SINGLE
     Route: 030
     Dates: start: 20080317, end: 20080317

REACTIONS (5)
  - DYSPHAGIA [None]
  - EYE DISORDER [None]
  - EYELID PTOSIS [None]
  - MUSCULAR WEAKNESS [None]
  - TONGUE PARALYSIS [None]
